FAERS Safety Report 11448037 (Version 1)
Quarter: 2015Q3

REPORT INFORMATION
  Report Type: Spontaneous
  Country: US (occurrence: US)
  Receive Date: 20150831
  Receipt Date: 20150831
  Transmission Date: 20151125
  Serious: Yes (Other)
  Sender: FDA-Public Use
  Company Number: US-ELI_LILLY_AND_COMPANY-US200903004055

PATIENT
  Age: 49 Year
  Sex: Female

DRUGS (11)
  1. CYMBALTA [Interacting]
     Active Substance: DULOXETINE HYDROCHLORIDE
     Dosage: 60 MG, UNK
  2. CYMBALTA [Interacting]
     Active Substance: DULOXETINE HYDROCHLORIDE
     Dosage: 30 MG, UNK
  3. NEURONTIN [Concomitant]
     Active Substance: GABAPENTIN
     Dosage: 300 MG, 2/D
  4. CYMBALTA [Suspect]
     Active Substance: DULOXETINE HYDROCHLORIDE
     Indication: MIGRAINE
     Dosage: 60 MG, UNK
  5. MIRAPEX [Concomitant]
     Active Substance: PRAMIPEXOLE DIHYDROCHLORIDE
     Dosage: 0.25 MG, AS NEEDED
  6. CLONIDINE HCL PCH [Concomitant]
     Route: 062
  7. VYTORIN [Concomitant]
     Active Substance: EZETIMIBE\SIMVASTATIN
  8. REQUIP [Concomitant]
     Active Substance: ROPINIROLE HYDROCHLORIDE
     Dosage: 4 MG, UNK
  9. LEXAPRO [Concomitant]
     Active Substance: ESCITALOPRAM OXALATE
     Dosage: 30 MG, UNK
  10. ELAVIL [Concomitant]
     Active Substance: AMITRIPTYLINE HYDROCHLORIDE
     Dosage: 50 MG, UNK
  11. SYNTHROID [Concomitant]
     Active Substance: LEVOTHYROXINE SODIUM

REACTIONS (10)
  - Blood pressure increased [Unknown]
  - Paraesthesia oral [Unknown]
  - Nausea [Unknown]
  - Serotonin syndrome [Unknown]
  - Confusional state [Unknown]
  - Vomiting [Unknown]
  - Drug interaction [Recovered/Resolved]
  - Agitation [Unknown]
  - Vitamin D decreased [Unknown]
  - Muscle twitching [Unknown]
